FAERS Safety Report 24112552 (Version 3)
Quarter: 2024Q4

REPORT INFORMATION
  Report Type: Report from Study
  Country: MX (occurrence: MX)
  Receive Date: 20240719
  Receipt Date: 20241009
  Transmission Date: 20250114
  Serious: Yes (Other)
  Sender: ALEXION PHARMACEUTICALS
  Company Number: 2024A161722

PATIENT
  Age: 56 Year
  Weight: 64 kg

DRUGS (5)
  1. TEZSPIRE [Suspect]
     Active Substance: TEZEPELUMAB-EKKO
     Dosage: 1 DOSAGE FORM, UNK, FREQUENCY: UNK
  2. TEZSPIRE [Suspect]
     Active Substance: TEZEPELUMAB-EKKO
     Dosage: 1 DOSAGE FORM, UNK, FREQUENCY: UNK
  3. TEZSPIRE [Suspect]
     Active Substance: TEZEPELUMAB-EKKO
     Dosage: 1 DOSAGE FORM, UNK, FREQUENCY: UNK
  4. TEZSPIRE [Suspect]
     Active Substance: TEZEPELUMAB-EKKO
     Dosage: 1 DOSAGE FORM, UNK, FREQUENCY: UNK
  5. IVABRADINE [Concomitant]
     Active Substance: IVABRADINE
     Indication: Cardiac disorder

REACTIONS (10)
  - Tachycardia [Recovered/Resolved]
  - Chest discomfort [Recovering/Resolving]
  - Bradycardia [Recovered/Resolved]
  - Pain in extremity [Recovering/Resolving]
  - Hypoaesthesia [Recovered/Resolved]
  - Malaise [Recovering/Resolving]
  - Pain in extremity [Recovered/Resolved]
  - Muscle spasms [Recovered/Resolved]
  - Fatigue [Unknown]
  - Electrocardiogram pacemaker spike [Not Recovered/Not Resolved]
